FAERS Safety Report 4786064-4 (Version None)
Quarter: 2005Q3

REPORT INFORMATION
  Report Type: 
  Country: None (occurrence: None)
  Receive Date: 20050930
  Receipt Date: 20050930
  Transmission Date: 20060218
  Serious: Yes (Hospitalization)
  Sender: FDA-Public Use
  Company Number: None

PATIENT
  Age: 66 Year
  Sex: Female
  Weight: 78.0187 kg

DRUGS (11)
  1. LINEZOLID 600MG [Suspect]
     Indication: MYCOBACTERIAL INFECTION
     Dosage: 600MG DAILY PO
     Route: 048
  2. ACETAMINOPHEN [Concomitant]
  3. PANTOPRAZOLE [Concomitant]
  4. ONDANSETRON [Concomitant]
  5. HYDROCHLOROTHIAZIDE/SPIRONOLACTONE [Concomitant]
  6. SYNTHROID [Concomitant]
  7. POTASSIUM CHLORIDE [Concomitant]
  8. FLUCONAZOLE [Concomitant]
  9. IRON [Concomitant]
  10. MOXIFLOXACIN HCL [Concomitant]
  11. AZITHROMYCIN [Concomitant]

REACTIONS (8)
  - ASTHENIA [None]
  - BONE MARROW DEPRESSION [None]
  - FAECES DISCOLOURED [None]
  - FATIGUE [None]
  - FEELING COLD [None]
  - HAEMOGLOBIN DECREASED [None]
  - PALLOR [None]
  - PANCYTOPENIA [None]
